FAERS Safety Report 4570284-8 (Version None)
Quarter: 2005Q1

REPORT INFORMATION
  Report Type: 
  Country: None (occurrence: None)
  Receive Date: 20050201
  Receipt Date: 20050125
  Transmission Date: 20050727
  Serious: Yes (Other)
  Sender: FDA-Public Use
  Company Number: 05-01-0110

PATIENT
  Sex: Male

DRUGS (11)
  1. METFORMIN HCL [Suspect]
     Dosage: 500MG BD ORAL
     Route: 048
  2. SIMVASTTIN [Concomitant]
  3. ASPIRIN [Concomitant]
  4. GALANTAMINE [Concomitant]
  5. FOLIC ACID [Concomitant]
  6. FERROUS SULFATE TAB [Concomitant]
  7. INSULIN GLARGINE [Concomitant]
  8. TAMSULOSIN [Concomitant]
  9. CITALOPRAM [Concomitant]
  10. DEXAMETHASONE [Concomitant]
  11. PERINDOPRIL [Concomitant]

REACTIONS (1)
  - NEUTROPENIA [None]
